FAERS Safety Report 10261701 (Version 1)
Quarter: 2014Q2

REPORT INFORMATION
  Report Type: Spontaneous
  Country: US (occurrence: US)
  Receive Date: 20140626
  Receipt Date: 20140626
  Transmission Date: 20141212
  Serious: Yes (Other)
  Sender: FDA-Public Use
  Company Number: US-PFIZER INC-2014173470

PATIENT
  Sex: 0

DRUGS (2)
  1. TOVIAZ [Suspect]
     Indication: MICTURITION DISORDER
     Dosage: 4 MG, UNK
  2. TOVIAZ [Suspect]
     Dosage: 8 MG, UNK

REACTIONS (2)
  - Confusional state [Unknown]
  - Drug effect incomplete [Unknown]
